FAERS Safety Report 15667847 (Version 3)
Quarter: 2019Q1

REPORT INFORMATION
  Report Type: Spontaneous
  Country: None (occurrence: US)
  Receive Date: 20181128
  Receipt Date: 20190107
  Transmission Date: 20190417
  Serious: Yes (Hospitalization)
  Sender: FDA-Public Use
  Company Number: US-FRESENIUS MEDICAL CARE RENAL THERAPIES GROUP-FMC-1811-002020

PATIENT
  Sex: Female
  Weight: 94 kg

DRUGS (10)
  1. LANTUS [Concomitant]
     Active Substance: INSULIN GLARGINE
  2. NITROGLYCERIN. [Concomitant]
     Active Substance: NITROGLYCERIN
  3. METOPROLOL XL [Concomitant]
     Active Substance: METOPROLOL SUCCINATE
  4. LEVOTHYROXINE. [Concomitant]
     Active Substance: LEVOTHYROXINE
  5. WARFARIN [Concomitant]
     Active Substance: WARFARIN
  6. DIPHENOXYLATE-ATROPINE [Concomitant]
     Active Substance: ATROPINE\DIPHENOXYLATE
  7. FUROSEMIDE. [Concomitant]
     Active Substance: FUROSEMIDE
  8. PRAVACHOL [Concomitant]
     Active Substance: PRAVASTATIN SODIUM
  9. ALLOPURINOL. [Concomitant]
     Active Substance: ALLOPURINOL
  10. DELFLEX [Suspect]
     Active Substance: CALCIUM CHLORIDE\DEXTROSE\MAGNESIUM CHLORIDE\SODIUM CHLORIDE\SODIUM LACTATE
     Indication: END STAGE RENAL DISEASE
     Dosage: THREE CYCLES OF 2500 ML FOR A TOTAL TREATMENT VOLUME OF 7500 ML
     Route: 033
     Dates: start: 20130315

REACTIONS (3)
  - Peritonitis bacterial [Recovering/Resolving]
  - Abdominal distension [Recovered/Resolved]
  - Pseudomonal sepsis [Recovering/Resolving]
